FAERS Safety Report 9409221 (Version 5)
Quarter: 2014Q1

REPORT INFORMATION
  Report Type: Spontaneous
  Country: US (occurrence: None)
  Receive Date: 20130429
  Receipt Date: 20140227
  Transmission Date: 20141002
  Serious: Yes (Other)
  Sender: FDA-Public Use
  Company Number: ADR-2013-00468

PATIENT
  Sex: Female

DRUGS (3)
  1. BACLOFEN INTRATHECAL [Suspect]
     Indication: PAIN
  2. CLONIDINE [Suspect]
  3. MORPHINE [Suspect]

REACTIONS (22)
  - Pain [None]
  - Drug withdrawal syndrome [None]
  - Headache [None]
  - Neck pain [None]
  - Abdominal pain upper [None]
  - Pain in extremity [None]
  - Musculoskeletal pain [None]
  - Blood pressure increased [None]
  - Malaise [None]
  - Muscle rigidity [None]
  - Muscle spasms [None]
  - Hypoaesthesia [None]
  - Paraesthesia [None]
  - Abdominal pain [None]
  - Dyskinesia [None]
  - Dehydration [None]
  - Mobility decreased [None]
  - Myocardial infarction [None]
  - Gout [None]
  - Lower limb fracture [None]
  - Fracture nonunion [None]
  - Catheter site vesicles [None]
